FAERS Safety Report 23345005 (Version 1)
Quarter: 2023Q4

REPORT INFORMATION
  Report Type: Spontaneous
  Country: US (occurrence: US)
  Receive Date: 20231228
  Receipt Date: 20231228
  Transmission Date: 20240110
  Serious: Yes (Other)
  Sender: FDA-Public Use
  Company Number: US-QILU PHARMACEUTICAL (HAINAN) CO.  LTD.-QLH-000211-2023

PATIENT
  Age: 5 Year
  Sex: Male

DRUGS (4)
  1. DAPTOMYCIN [Suspect]
     Active Substance: DAPTOMYCIN
     Indication: Bacillus infection
     Dosage: UNK
     Route: 050
  2. DAPTOMYCIN [Suspect]
     Active Substance: DAPTOMYCIN
     Indication: Bacillus infection
  3. CEFEPIME [Suspect]
     Active Substance: CEFEPIME HYDROCHLORIDE
     Indication: Evidence based treatment
     Dosage: 50 MG/KG/DOSE EVERY 8 HOURS
     Route: 065
  4. RIVAROXABAN [Concomitant]
     Active Substance: RIVAROXABAN
     Dosage: UNK
     Route: 065

REACTIONS (2)
  - Liver injury [Recovered/Resolved]
  - Off label use [Recovered/Resolved]
